FAERS Safety Report 9161603 (Version 2)
Quarter: 2013Q2

REPORT INFORMATION
  Report Type: Spontaneous
  Country: NZ (occurrence: NZ)
  Receive Date: 20130313
  Receipt Date: 20130501
  Transmission Date: 20140414
  Serious: Yes (Hospitalization)
  Sender: FDA-Public Use
  Company Number: NZ-B.I. PHARMACEUTICALS,INC./RIDGEFIELD-2013-AU-00272AU

PATIENT
  Age: 66 Year
  Sex: Female
  Weight: 112.3 kg

DRUGS (8)
  1. PRADAXA [Suspect]
     Indication: ATRIAL FIBRILLATION
     Dosage: 300 MG
     Dates: end: 20121211
  2. CARBIMAZOLE [Concomitant]
  3. QUINAPRIL [Concomitant]
  4. METOPROLOL [Concomitant]
  5. SPIRONOLACTONE [Concomitant]
  6. BFZ [Concomitant]
  7. SLOW K [Concomitant]
  8. MAGNESIUM [Concomitant]

REACTIONS (4)
  - Cardiac failure congestive [Not Recovered/Not Resolved]
  - Subdural haemorrhage [Not Recovered/Not Resolved]
  - Gastrointestinal haemorrhage [Not Recovered/Not Resolved]
  - Melaena [Not Recovered/Not Resolved]
